FAERS Safety Report 7277958-9 (Version None)
Quarter: 2011Q1

REPORT INFORMATION
  Report Type: 
  Country: None (occurrence: None)
  Receive Date: 20110207
  Receipt Date: 20110125
  Transmission Date: 20110831
  Serious: Yes (Hospitalization)
  Sender: FDA-Public Use
  Company Number: IT-ELI_LILLY_AND_COMPANY-IT201101006171

PATIENT
  Sex: Female

DRUGS (1)
  1. ALIMTA [Suspect]
     Indication: LUNG ADENOCARCINOMA
     Dosage: 700 D/F, DAILY (1/D)
     Route: 042
     Dates: start: 20100728, end: 20100818

REACTIONS (3)
  - DERMATITIS [None]
  - VOMITING [None]
  - ASTHENIA [None]
